FAERS Safety Report 24708720 (Version 2)
Quarter: 2024Q4

REPORT INFORMATION
  Report Type: Report from Study
  Country: US (occurrence: US)
  Receive Date: 20241207
  Receipt Date: 20241210
  Transmission Date: 20250114
  Serious: Yes (Life-Threatening, Hospitalization, Other)
  Sender: TAKEDA
  Company Number: US-TAKEDA-2024TUS117523

PATIENT
  Age: 27 Year
  Sex: Male

DRUGS (8)
  1. TEDUGLUTIDE [Suspect]
     Active Substance: TEDUGLUTIDE
     Indication: Short-bowel syndrome
     Dosage: 2.8 MILLIGRAM, QD
     Dates: start: 20220213
  2. TEDUGLUTIDE [Suspect]
     Active Substance: TEDUGLUTIDE
     Dosage: 2.1 MILLIGRAM, QD
     Dates: start: 20230925, end: 202410
  3. TEDUGLUTIDE [Suspect]
     Active Substance: TEDUGLUTIDE
  4. TEDUGLUTIDE [Suspect]
     Active Substance: TEDUGLUTIDE
  5. ZINC OXIDE [Concomitant]
     Active Substance: ZINC OXIDE
     Indication: Dry skin
     Dosage: 20 PERCENT
     Route: 061
     Dates: start: 20230123, end: 20230128
  6. DILAUDID [Concomitant]
     Active Substance: HYDROMORPHONE HYDROCHLORIDE
     Indication: Pain
     Dosage: 0.5 MILLIGRAM, BID
     Dates: start: 202301, end: 202301
  7. ACETAMINOPHEN [Concomitant]
     Active Substance: ACETAMINOPHEN
     Indication: Pain
     Dosage: UNK
     Dates: start: 20230123, end: 20230123
  8. ANCEF [Concomitant]
     Active Substance: CEFAZOLIN SODIUM
     Indication: Staphylococcal infection
     Dosage: UNK
     Dates: start: 20221229, end: 20230106

REACTIONS (3)
  - Seizure [Recovered/Resolved]
  - Sepsis [Recovered/Resolved]
  - Small intestinal obstruction [Recovered/Resolved]

NARRATIVE: CASE EVENT DATE: 20241028
